FAERS Safety Report 18649122 (Version 1)
Quarter: 2020Q4

REPORT INFORMATION
  Report Type: Spontaneous
  Country: US (occurrence: US)
  Receive Date: 20201222
  Receipt Date: 20201222
  Transmission Date: 20210114
  Serious: No
  Sender: FDA-Public Use
  Company Number: None

PATIENT
  Age: 51 Year
  Sex: Female

DRUGS (2)
  1. HUMIRA [Suspect]
     Active Substance: ADALIMUMAB
     Indication: RHEUMATOID ARTHRITIS
     Route: 058
     Dates: start: 202005
  2. ORENCIA [Suspect]
     Active Substance: ABATACEPT

REACTIONS (3)
  - Oral fungal infection [None]
  - Vulvovaginal mycotic infection [None]
  - Feeding disorder [None]
